FAERS Safety Report 6122368-0 (Version None)
Quarter: 2009Q1

REPORT INFORMATION
  Report Type: 
  Country: None (occurrence: None)
  Receive Date: 20090318
  Receipt Date: 20090120
  Transmission Date: 20090719
  Serious: No
  Sender: FDA-Public Use
  Company Number: US-ASTRAZENECA-2009UW01956

PATIENT
  Sex: Female

DRUGS (7)
  1. SYMBICORT [Suspect]
     Indication: NASOPHARYNGITIS
     Dosage: 320
     Route: 055
     Dates: start: 20090119
  2. ALBUTEROL [Concomitant]
  3. AMOXICILLIN [Concomitant]
     Indication: INFECTION
     Route: 048
  4. SIMVASTATIN [Concomitant]
     Indication: HYPERCHOLESTEROLAEMIA
     Route: 048
  5. PREMARIN [Concomitant]
     Route: 048
  6. DIFLUCAN [Concomitant]
     Route: 048
  7. PREDNISONE TAPER [Concomitant]
     Route: 048

REACTIONS (2)
  - DYSPNOEA [None]
  - MALAISE [None]
